FAERS Safety Report 15267970 (Version 1)
Quarter: 2018Q3

REPORT INFORMATION
  Report Type: Spontaneous
  Country: US (occurrence: US)
  Receive Date: 20180725
  Receipt Date: 20180725
  Transmission Date: 20181010
  Serious: Yes (Life-Threatening, Disabling, Other)
  Sender: FDA-Public Use
  Company Number: None

PATIENT
  Age: 34 Year
  Sex: Female
  Weight: 105.75 kg

DRUGS (6)
  1. ABUTEROL SULFATE [Suspect]
     Active Substance: ALBUTEROL SULFATE
  2. SIMBICORT [Concomitant]
     Active Substance: BUDESONIDE\FORMOTEROL FUMARATE
  3. SYNTHROID [Concomitant]
     Active Substance: LEVOTHYROXINE SODIUM
  4. SINGULAIR [Concomitant]
     Active Substance: MONTELUKAST SODIUM
  5. FLONAISE [Concomitant]
  6. METFORMIN [Concomitant]
     Active Substance: METFORMIN HYDROCHLORIDE

REACTIONS (20)
  - Heart rate increased [None]
  - Chest pain [None]
  - Therapy cessation [None]
  - Protein urine present [None]
  - Tremor [None]
  - Dyspnoea [None]
  - Hypoaesthesia [None]
  - Rash [None]
  - Cold sweat [None]
  - Dizziness [None]
  - Palpitations [None]
  - Impaired work ability [None]
  - Red blood cells urine [None]
  - Choluria [None]
  - Feeling abnormal [None]
  - Feeling jittery [None]
  - Back pain [None]
  - Antinuclear antibody positive [None]
  - Systemic lupus erythematosus [None]
  - Fatigue [None]

NARRATIVE: CASE EVENT DATE: 20180706
